FAERS Safety Report 5449986-7 (Version None)
Quarter: 2007Q3

REPORT INFORMATION
  Report Type: 
  Country: None (occurrence: None)
  Receive Date: 20070912
  Receipt Date: 20070829
  Transmission Date: 20080115
  Serious: Yes (Hospitalization, Other)
  Sender: FDA-Public Use
  Company Number: JP-KINGPHARMUSA00001-K200701071

PATIENT

DRUGS (4)
  1. QUIBRON-T/SR [Suspect]
     Indication: ASTHMA
     Dosage: 200 MG, QD
     Dates: start: 19980101, end: 20030301
  2. CALCIUM LACTATE [Suspect]
     Indication: OSTEOPOROSIS
     Dosage: 3 G, QD
     Dates: end: 20030801
  3. ALFACALCIDOL [Suspect]
     Indication: OSTEOPOROSIS
     Dosage: 1 UG, QD
  4. PREDNISOLONE [Concomitant]
     Indication: ASTHMA
     Dosage: 5 MG, QD
     Dates: start: 19880101

REACTIONS (5)
  - HEADACHE [None]
  - HYPERCALCAEMIA [None]
  - HYPOCALCIURIA [None]
  - NAUSEA [None]
  - RENAL FAILURE [None]
